FAERS Safety Report 22167703 (Version 1)
Quarter: 2023Q2

REPORT INFORMATION
  Report Type: Spontaneous
  Country: US (occurrence: US)
  Receive Date: 20230403
  Receipt Date: 20230403
  Transmission Date: 20230721
  Serious: No
  Sender: FDA-Public Use
  Company Number: US-PFIZER INC-202300138079

PATIENT
  Sex: Female

DRUGS (1)
  1. PAXLOVID [Suspect]
     Active Substance: NIRMATRELVIR\RITONAVIR
     Indication: COVID-19 treatment
     Dosage: UNK

REACTIONS (7)
  - Dysgeusia [Unknown]
  - Paranasal sinus discomfort [Unknown]
  - Headache [Unknown]
  - Ear discomfort [Unknown]
  - Ocular discomfort [Unknown]
  - Nausea [Unknown]
  - Nasal discomfort [Unknown]
